FAERS Safety Report 26200514 (Version 1)
Quarter: 2025Q4

REPORT INFORMATION
  Report Type: Spontaneous
  Country: CN (occurrence: CN)
  Receive Date: 20251225
  Receipt Date: 20251225
  Transmission Date: 20260117
  Serious: Yes (Other)
  Sender: ABBVIE
  Company Number: CN-ABBVIE-6601914

PATIENT
  Age: 33 Year
  Sex: Male
  Weight: 75 kg

DRUGS (3)
  1. VENETOCLAX [Suspect]
     Active Substance: VENETOCLAX
     Indication: Product used for unknown indication
     Dosage: DAY 1
     Route: 048
     Dates: start: 20250928, end: 20250928
  2. VENETOCLAX [Suspect]
     Active Substance: VENETOCLAX
     Indication: Product used for unknown indication
     Dosage: DAYS 3?28
     Route: 048
     Dates: start: 20250930, end: 20251021
  3. VENETOCLAX [Suspect]
     Active Substance: VENETOCLAX
     Indication: Product used for unknown indication
     Dosage: DAY 2
     Route: 048
     Dates: start: 20250929, end: 20250929

REACTIONS (3)
  - Myelosuppression [Recovering/Resolving]
  - Neutrophil count decreased [Recovering/Resolving]
  - White blood cell count decreased [Recovering/Resolving]

NARRATIVE: CASE EVENT DATE: 20251021
